FAERS Safety Report 7872389-2 (Version None)
Quarter: 2011Q4

REPORT INFORMATION
  Report Type: 
  Country: None (occurrence: None)
  Receive Date: 20111030
  Receipt Date: 20110318
  Transmission Date: 20120403
  Serious: No
  Sender: FDA-Public Use
  Company Number: US-AMGEN-USASP2011014994

PATIENT
  Sex: Female
  Weight: 74.83 kg

DRUGS (4)
  1. ENPRESSE-28 [Concomitant]
  2. ENBREL [Suspect]
     Dosage: 50 MG, QWK
  3. PREVACID [Concomitant]
     Dosage: 30 MG, UNK
  4. ETODOLAC [Concomitant]
     Dosage: 400 MG, UNK

REACTIONS (2)
  - INJECTION SITE SWELLING [None]
  - INJECTION SITE REACTION [None]
